FAERS Safety Report 5294466-5 (Version None)
Quarter: 2007Q2

REPORT INFORMATION
  Report Type: 
  Country: None (occurrence: None)
  Receive Date: 20070412
  Receipt Date: 20070328
  Transmission Date: 20071010
  Serious: Yes (Hospitalization)
  Sender: FDA-Public Use
  Company Number: US-AMGEN-KDL198471

PATIENT
  Sex: Male
  Weight: 80 kg

DRUGS (4)
  1. PROCRIT [Suspect]
     Indication: RENAL FAILURE CHRONIC
     Route: 058
     Dates: start: 20000101
  2. MAVIK [Concomitant]
     Dates: start: 20000101
  3. SODIUM BICARBONATE [Concomitant]
     Dates: start: 20060101
  4. LASIX [Concomitant]
     Dates: start: 20060101

REACTIONS (4)
  - DYSPNOEA [None]
  - INFLUENZA LIKE ILLNESS [None]
  - PULMONARY CONGESTION [None]
  - PULMONARY OEDEMA [None]
